FAERS Safety Report 7535215-7 (Version None)
Quarter: 2011Q2

REPORT INFORMATION
  Report Type: 
  Country: None (occurrence: None)
  Receive Date: 20110609
  Receipt Date: 20071123
  Transmission Date: 20111010
  Serious: Yes (Hospitalization)
  Sender: FDA-Public Use
  Company Number: PHHO2007GB19476

PATIENT
  Sex: Female

DRUGS (8)
  1. NEORAL [Suspect]
     Dosage: 200 MG, QD
     Route: 048
     Dates: start: 19930419
  2. PROPRANOLOL [Concomitant]
     Dosage: UNKNOWN
  3. ALFACALCIDOL [Concomitant]
     Dosage: UNKNOWN
  4. FERROUS SULFATE TAB [Concomitant]
     Dosage: UNKNOWN
  5. AZATHIOPRINE [Concomitant]
     Dosage: 75 MG, QD
     Dates: start: 19930419
  6. PREDNISOLONE [Concomitant]
     Dosage: 4 MG, QD
     Dates: start: 19930419
  7. PERINDOPRIL ERBUMINE [Concomitant]
  8. RANITIDINE [Concomitant]
     Dosage: UNKNOWN

REACTIONS (2)
  - MENORRHAGIA [None]
  - ANAEMIA [None]
